FAERS Safety Report 25726798 (Version 1)
Quarter: 2025Q3

REPORT INFORMATION
  Report Type: Spontaneous
  Country: US (occurrence: None)
  Receive Date: 20250825
  Receipt Date: 20250825
  Transmission Date: 20251020
  Serious: Yes (Hospitalization)
  Sender: FDA-CTU
  Company Number: None

PATIENT

DRUGS (1)
  1. APIXABAN [Suspect]
     Active Substance: APIXABAN

REACTIONS (4)
  - Headache [None]
  - Transient ischaemic attack [None]
  - Lacunar stroke [None]
  - Cerebral haemorrhage [None]

NARRATIVE: CASE EVENT DATE: 20220831
